FAERS Safety Report 12119676 (Version 3)
Quarter: 2016Q1

REPORT INFORMATION
  Report Type: Spontaneous
  Country: CZ (occurrence: CZ)
  Receive Date: 20160226
  Receipt Date: 20160314
  Transmission Date: 20160526
  Serious: Yes (Life-Threatening, Other)
  Sender: FDA-Public Use
  Company Number: CZ-JNJFOC-20160222964

PATIENT
  Age: 13 Year
  Sex: Female
  Weight: 50.5 kg

DRUGS (7)
  1. PARACETAMOL [Concomitant]
     Active Substance: ACETAMINOPHEN
     Route: 065
     Dates: start: 20160212
  2. PREDNISONE. [Concomitant]
     Active Substance: PREDNISONE
     Route: 048
     Dates: start: 20160212
  3. IMURAN [Concomitant]
     Active Substance: AZATHIOPRINE
     Route: 065
  4. REMICADE [Suspect]
     Active Substance: INFLIXIMAB
     Indication: CROHN^S DISEASE
     Route: 042
  5. REMICADE [Suspect]
     Active Substance: INFLIXIMAB
     Indication: CROHN^S DISEASE
     Dosage: 3RD INFUSION
     Route: 042
     Dates: start: 20160210, end: 20160210
  6. ZODAC [Concomitant]
     Route: 065
  7. ALERID [Concomitant]
     Active Substance: CETIRIZINE HYDROCHLORIDE
     Route: 065
     Dates: start: 20160212

REACTIONS (8)
  - Tachycardia [Recovered/Resolved]
  - Chest pain [Recovered/Resolved]
  - Urticaria [Recovered/Resolved]
  - Chest discomfort [Recovered/Resolved]
  - Generalised erythema [Recovered/Resolved]
  - Dyspnoea [Recovered/Resolved]
  - Rash [Recovered/Resolved]
  - Infusion related reaction [Recovered/Resolved]

NARRATIVE: CASE EVENT DATE: 20160210
